FAERS Safety Report 6296884-5 (Version None)
Quarter: 2009Q3

REPORT INFORMATION
  Report Type: 
  Country: None (occurrence: None)
  Receive Date: 20090804
  Receipt Date: 20090723
  Transmission Date: 20100115
  Serious: Yes (Hospitalization, Disabling)
  Sender: FDA-Public Use
  Company Number: PHHY2009AU27648

PATIENT
  Age: 50 Year
  Sex: Female

DRUGS (3)
  1. GLEEVEC [Suspect]
     Dosage: 600 MG, UNK
     Route: 048
     Dates: start: 20090506, end: 20090524
  2. GLEEVEC [Suspect]
     Dosage: 400 MG, UNK
     Dates: start: 20090528
  3. HYPER-CVAD [Concomitant]
     Dosage: UNK
     Dates: start: 20090506, end: 20090626

REACTIONS (2)
  - ILEUS [None]
  - REVERSIBLE POSTERIOR LEUKOENCEPHALOPATHY SYNDROME [None]
